FAERS Safety Report 7781399-5 (Version None)
Quarter: 2011Q3

REPORT INFORMATION
  Report Type: 
  Country: None (occurrence: None)
  Receive Date: 20110927
  Receipt Date: 20110922
  Transmission Date: 20111222
  Serious: Yes (Hospitalization, Disabling)
  Sender: FDA-Public Use
  Company Number: US-MERCK-1106USA02216

PATIENT
  Age: 66 Year
  Sex: Female

DRUGS (7)
  1. DICLOFENAC [Concomitant]
     Route: 065
     Dates: start: 19910101
  2. CENTRUM SILVER ULTRA WOMENS [Concomitant]
     Route: 048
     Dates: start: 19890101
  3. FOSAMAX [Suspect]
     Route: 048
  4. ASCORBIC ACID [Concomitant]
     Route: 048
     Dates: start: 19890101
  5. MAGNESIUM (UNSPECIFIED) [Concomitant]
     Route: 048
     Dates: start: 19890101
  6. POTASSIUM (UNSPECIFIED) [Concomitant]
     Route: 048
     Dates: start: 19890101
  7. FOSAMAX [Suspect]
     Indication: OSTEOPOROSIS
     Route: 048
     Dates: start: 19950101, end: 20090601

REACTIONS (20)
  - SEPSIS [None]
  - HYDROCEPHALUS [None]
  - NAUSEA [None]
  - HAEMORRHAGIC ANAEMIA [None]
  - COUGH [None]
  - MEMORY IMPAIRMENT [None]
  - URINARY TRACT INFECTION [None]
  - RESPIRATORY DISTRESS [None]
  - INTERVERTEBRAL DISC DEGENERATION [None]
  - FALL [None]
  - BLOOD CHOLESTEROL INCREASED [None]
  - FEMUR FRACTURE [None]
  - THROMBOSIS [None]
  - SUBENDOCARDIAL ISCHAEMIA [None]
  - INFECTION [None]
  - INTESTINAL OBSTRUCTION [None]
  - HYPERTENSION [None]
  - UPPER LIMB FRACTURE [None]
  - SINUS TACHYCARDIA [None]
  - PAIN [None]
